FAERS Safety Report 5014171-X (Version None)
Quarter: 2006Q2

REPORT INFORMATION
  Report Type: 
  Country: None (occurrence: None)
  Receive Date: 20060414
  Receipt Date: 20060214
  Transmission Date: 20061013
  Serious: No
  Sender: FDA-Public Use
  Company Number: 2006SP000772

PATIENT
  Age: 86 Year
  Sex: Female
  Weight: 68.0396 kg

DRUGS (8)
  1. LUNESTA [Suspect]
     Indication: SLEEP DISORDER
     Dosage: 2 MG;ORAL
     Route: 048
     Dates: start: 20051101
  2. K-DUR 10 [Concomitant]
  3. DIPYRIDAMOLE [Concomitant]
  4. LEVOXYL [Concomitant]
  5. CELEBREX [Concomitant]
  6. AMLODIPINE BESYLATE [Concomitant]
  7. MULTIVITAMIN [Concomitant]
  8. ASPIRIN [Concomitant]

REACTIONS (1)
  - CHILLS [None]
